FAERS Safety Report 7767928-6 (Version None)
Quarter: 2011Q3

REPORT INFORMATION
  Report Type: 
  Country: None (occurrence: None)
  Receive Date: 20110922
  Receipt Date: 20100923
  Transmission Date: 20111222
  Serious: No
  Sender: FDA-Public Use
  Company Number: US-ASTRAZENECA-2010SE44846

PATIENT
  Age: 16 Year
  Sex: Male
  Weight: 81.6 kg

DRUGS (3)
  1. SEROQUEL [Suspect]
     Indication: ANGER
     Route: 048
     Dates: start: 20100601
  2. LEXAPRO [Concomitant]
  3. SEROQUEL [Suspect]
     Route: 048
     Dates: start: 20100901

REACTIONS (4)
  - SOMNOLENCE [None]
  - DRUG DOSE OMISSION [None]
  - FATIGUE [None]
  - IRRITABILITY [None]
